FAERS Safety Report 9560395 (Version 1)
Quarter: 2013Q3

REPORT INFORMATION
  Report Type: Spontaneous
  Country: US (occurrence: None)
  Receive Date: 20130906
  Receipt Date: 20130906
  Transmission Date: 20140515
  Serious: No
  Sender: FDA-Public Use
  Company Number: 163-POMAL-13054961

PATIENT
  Age: 75 Year
  Sex: Male
  Weight: 79.38 kg

DRUGS (3)
  1. POMALYST (POMALIDOMIDE) (CAPSULES) [Suspect]
     Indication: PLASMA CELL MYELOMA
     Dosage: 3 MG, 1 IN 1 D, PO
     Route: 048
     Dates: start: 20130510, end: 20130611
  2. ZOMETA (ZOLEDRONIC ACID) [Concomitant]
  3. METOPROLOL (METOPROLOL) [Concomitant]

REACTIONS (2)
  - Oral candidiasis [None]
  - Rash pruritic [None]
